FAERS Safety Report 16961825 (Version 3)
Quarter: 2020Q3

REPORT INFORMATION
  Report Type: Report from Study
  Country: US (occurrence: US)
  Receive Date: 20191025
  Receipt Date: 20200819
  Transmission Date: 20201102
  Serious: Yes (Other)
  Sender: FDA-Public Use
  Company Number: US-PFIZER INC-2019457083

PATIENT
  Age: 3 Year
  Sex: Female
  Weight: 17.3 kg

DRUGS (4)
  1. CLARITIN [Concomitant]
     Active Substance: LORATADINE
     Indication: HYPERSENSITIVITY
     Dosage: CHEWABLE, 5 MG, DAILY, AS NEEDED
     Route: 048
     Dates: start: 20190731
  2. XALKORI [Suspect]
     Active Substance: CRIZOTINIB
     Indication: NEUROBLASTOMA
     Dosage: 6.1 ML, BID
     Route: 048
     Dates: start: 20190626
  3. MIRALAX [Concomitant]
     Active Substance: POLYETHYLENE GLYCOL 3350
     Indication: CONSTIPATION
     Dosage: 0.5?0.75, CAPFUL
     Route: 048
     Dates: start: 20190614
  4. VITAMIN D [ERGOCALCIFEROL] [Concomitant]
     Active Substance: ERGOCALCIFEROL
     Indication: VITAMIN SUPPLEMENTATION
     Dosage: 0.25, DAILY
     Route: 048
     Dates: start: 20190327

REACTIONS (16)
  - Hypermagnesaemia [Not Recovered/Not Resolved]
  - Rash papular [Recovered/Resolved]
  - Nail infection [Not Recovered/Not Resolved]
  - Pneumonia [Recovered/Resolved]
  - Neutrophil count decreased [Recovered/Resolved]
  - Alanine aminotransferase increased [Recovered/Resolved]
  - Haemoglobin increased [Recovered/Resolved]
  - Blood lactate dehydrogenase increased [Not Recovered/Not Resolved]
  - Blood alkaline phosphatase increased [Recovered/Resolved]
  - Blood thyroid stimulating hormone increased [Not Recovered/Not Resolved]
  - Blood bicarbonate decreased [Recovered/Resolved]
  - Hyperkalaemia [Not Recovered/Not Resolved]
  - Eosinophilia [Unknown]
  - Diarrhoea [Recovered/Resolved]
  - Dry skin [Not Recovered/Not Resolved]
  - Pyrexia [Recovered/Resolved]

NARRATIVE: CASE EVENT DATE: 20190707
